FAERS Safety Report 9986257 (Version 1)
Quarter: 2014Q1

REPORT INFORMATION
  Report Type: Spontaneous
  Country: PR (occurrence: PR)
  Receive Date: 20140307
  Receipt Date: 20140307
  Transmission Date: 20141002
  Serious: No
  Sender: FDA-Public Use
  Company Number: PR-ABBVIE-13P-131-1084024-00

PATIENT
  Sex: Female

DRUGS (3)
  1. HUMIRA [Suspect]
     Indication: RHEUMATOID ARTHRITIS
     Route: 058
     Dates: start: 201110
  2. SYNTHROID [Concomitant]
     Indication: THYROID NEOPLASM
     Route: 048
     Dates: start: 2009
  3. ZANTAC [Concomitant]
     Indication: GASTRITIS
     Route: 048

REACTIONS (1)
  - Adverse drug reaction [Unknown]
